FAERS Safety Report 7179064-0 (Version None)
Quarter: 2010Q4

REPORT INFORMATION
  Report Type: 
  Country: None (occurrence: None)
  Receive Date: 20101221
  Receipt Date: 20101208
  Transmission Date: 20110411
  Serious: Yes (Other)
  Sender: FDA-Public Use
  Company Number: US-SOLVAY-00210007296

PATIENT
  Age: 555 Month
  Sex: Male
  Weight: 81.818 kg

DRUGS (2)
  1. PRILOSEC [Concomitant]
     Indication: GASTROOESOPHAGEAL REFLUX DISEASE
     Dosage: DAILY DOSE:  UNKNOWN
     Route: 065
  2. ANDROGEL [Suspect]
     Indication: ANDROGEN REPLACEMENT THERAPY
     Dosage: DAILY DOSE: 7.5 GRAM(S); AS USED: SIX PUMPS; SEVERAL YEARS 4-5 YEARS; VIA PUMP
     Route: 062

REACTIONS (1)
  - NEOPLASM MALIGNANT [None]
